FAERS Safety Report 14244845 (Version 3)
Quarter: 2018Q1

REPORT INFORMATION
  Report Type: Spontaneous
  Country: US (occurrence: US)
  Receive Date: 20171201
  Receipt Date: 20180215
  Transmission Date: 20180508
  Serious: No
  Sender: FDA-Public Use
  Company Number: US-ACTELION-A-US2017-163440

PATIENT
  Age: 65 Year
  Sex: Female
  Weight: 69.39 kg

DRUGS (3)
  1. SILDENAFIL. [Concomitant]
     Active Substance: SILDENAFIL
  2. VELETRI [Suspect]
     Active Substance: EPOPROSTENOL
     Indication: PULMONARY ARTERIAL HYPERTENSION
     Dosage: 14 NG/KG, PER MIN
     Route: 042
     Dates: start: 20171111
  3. VELETRI [Suspect]
     Active Substance: EPOPROSTENOL
     Dosage: 11 NG/KG, PER MIN
     Route: 042
     Dates: start: 20171111

REACTIONS (7)
  - Nasopharyngitis [Unknown]
  - Dysphonia [Unknown]
  - Rhinorrhoea [Unknown]
  - Cough [Unknown]
  - Diarrhoea [Unknown]
  - Pain in jaw [Unknown]
  - Malaise [Unknown]
